FAERS Safety Report 21418719 (Version 3)
Quarter: 2022Q4

REPORT INFORMATION
  Report Type: Spontaneous
  Country: JP (occurrence: JP)
  Receive Date: 20221006
  Receipt Date: 20221201
  Transmission Date: 20230113
  Serious: Yes (Other)
  Sender: FDA-Public Use
  Company Number: JP-TAKEDA-2022TJP072535

PATIENT
  Age: 45 Year
  Sex: Female

DRUGS (4)
  1. LEUPLIN [Suspect]
     Active Substance: LEUPROLIDE ACETATE
     Indication: Hormone receptor positive breast cancer
     Dosage: UNKNOWN
     Route: 050
  2. TAMOXIFEN [Suspect]
     Active Substance: TAMOXIFEN
     Indication: Hormone receptor positive breast cancer
     Route: 048
  3. FARESTON [Suspect]
     Active Substance: TOREMIFENE CITRATE
     Indication: Hormone receptor positive breast cancer
     Route: 065
  4. ARIMIDEX [Suspect]
     Active Substance: ANASTROZOLE
     Indication: Hormone receptor positive breast cancer
     Route: 065

REACTIONS (3)
  - Endometrial adenocarcinoma [Unknown]
  - Amenorrhoea [Unknown]
  - Endometrial hyperplasia [Unknown]
